FAERS Safety Report 23314643 (Version 1)
Quarter: 2023Q4

REPORT INFORMATION
  Report Type: Report from Study
  Country: IT (occurrence: IT)
  Receive Date: 20231219
  Receipt Date: 20231219
  Transmission Date: 20240110
  Serious: Yes (Hospitalization)
  Sender: FDA-Public Use
  Company Number: IT-PIERREL S.P.A.-2023PIR00061

PATIENT
  Age: 25 Year
  Sex: Female

DRUGS (1)
  1. ARTICAINE\EPINEPHRINE [Suspect]
     Active Substance: ARTICAINE\EPINEPHRINE
     Indication: Local anaesthesia
     Dosage: 1 DOSAGE UNITS, ONCE
     Route: 004
     Dates: start: 20231116, end: 20231116

REACTIONS (4)
  - Tonsillar exudate [Recovering/Resolving]
  - Face oedema [Recovering/Resolving]
  - Oropharyngeal discomfort [Recovering/Resolving]
  - Tonsillar hypertrophy [Recovering/Resolving]

NARRATIVE: CASE EVENT DATE: 20231116
